FAERS Safety Report 9106996 (Version 2)
Quarter: 2013Q1

REPORT INFORMATION
  Report Type: Report from Study
  Country: JP (occurrence: JP)
  Receive Date: 20130221
  Receipt Date: 20130228
  Transmission Date: 20140127
  Serious: Yes (Other)
  Sender: FDA-Public Use
  Company Number: JP-ASTRAZENECA-2013SE10743

PATIENT
  Age: 63 Year
  Sex: Male

DRUGS (17)
  1. CRESTOR [Suspect]
     Indication: HYPERCHOLESTEROLAEMIA
     Route: 048
     Dates: start: 20120823, end: 20120924
  2. CRESTOR [Suspect]
     Indication: HYPERCHOLESTEROLAEMIA
     Route: 048
     Dates: start: 20120925, end: 20121102
  3. CRESTOR [Suspect]
     Indication: HYPERCHOLESTEROLAEMIA
     Route: 048
     Dates: start: 20121103
  4. ACTOS [Concomitant]
     Indication: DIABETES MELLITUS
     Route: 065
     Dates: start: 20080303, end: 20121226
  5. AMARYL [Concomitant]
     Indication: DIABETES MELLITUS
     Route: 065
     Dates: start: 20110531
  6. METGLUCO [Concomitant]
     Indication: DIABETES MELLITUS
     Route: 065
     Dates: start: 20120823, end: 20130109
  7. NOVORAPID 30 MIX [Concomitant]
     Indication: DIABETES MELLITUS
     Route: 065
     Dates: start: 20120203, end: 20120923
  8. NOVORAPID 30 MIX [Concomitant]
     Indication: DIABETES MELLITUS
     Route: 065
     Dates: start: 20120924, end: 20121102
  9. NOVORAPID 30 MIX [Concomitant]
     Indication: DIABETES MELLITUS
     Route: 065
     Dates: start: 20121103, end: 20130108
  10. NOVORAPID 30 MIX [Concomitant]
     Indication: DIABETES MELLITUS
     Route: 065
     Dates: start: 20130109
  11. GLYCORAN [Concomitant]
     Indication: DIABETES MELLITUS
     Route: 065
     Dates: start: 20130110
  12. KINEDAK [Concomitant]
     Route: 065
     Dates: start: 20090525
  13. LYRICA [Concomitant]
     Route: 065
     Dates: start: 20110531, end: 20121226
  14. BAYASPIRIN [Concomitant]
     Route: 065
     Dates: start: 20121225
  15. PLAVIX [Concomitant]
     Route: 065
     Dates: start: 20121225
  16. LASIX [Concomitant]
     Route: 065
     Dates: start: 20121225
  17. PARIET [Concomitant]
     Route: 065
     Dates: start: 20121225

REACTIONS (1)
  - Myocardial infarction [Unknown]
